FAERS Safety Report 13445636 (Version 1)
Quarter: 2017Q2

REPORT INFORMATION
  Report Type: Spontaneous
  Country: CA (occurrence: CA)
  Receive Date: 20170415
  Receipt Date: 20170415
  Transmission Date: 20170830
  Serious: Yes (Life-Threatening)
  Sender: FDA-Public Use
  Company Number: CA-JNJFOC-20170409453

PATIENT
  Age: 61 Year
  Sex: Male

DRUGS (11)
  1. LANOXIN [Concomitant]
     Active Substance: DIGOXIN
     Indication: ARRHYTHMIA
     Dosage: DIE
     Route: 065
  2. HUMULIN N [Concomitant]
     Active Substance: INSULIN HUMAN
     Indication: TYPE 2 DIABETES MELLITUS
     Dosage: HS
     Route: 065
  3. TYLENOL SINUS [Suspect]
     Active Substance: ACETAMINOPHEN\DIPHENHYDRAMINE
     Indication: PRODUCT USED FOR UNKNOWN INDICATION
     Dosage: ABOUT 4500 MG OF ACETAMINOPHEN FOR 3 DAYS
     Route: 065
  4. APO-K [Suspect]
     Active Substance: POTASSIUM CHLORIDE
     Indication: CARDIAC ASSISTANCE DEVICE USER
     Dosage: 2 TABS DAILY AM
     Route: 048
     Dates: start: 20050208, end: 20050302
  5. APO-METFORMIN [Concomitant]
     Indication: TYPE 2 DIABETES MELLITUS
     Route: 065
  6. NOVO-AMIODARONE [Concomitant]
     Indication: ARRHYTHMIA
     Dosage: DIE
     Route: 065
  7. APO-K [Suspect]
     Active Substance: POTASSIUM CHLORIDE
     Indication: ARRHYTHMIA
     Dosage: 2 TABS DAILY AM
     Route: 048
     Dates: start: 20050208, end: 20050302
  8. APO-K [Suspect]
     Active Substance: POTASSIUM CHLORIDE
     Indication: ANTICOAGULANT THERAPY
     Dosage: 2 TABS DAILY AM
     Route: 048
     Dates: start: 20050208, end: 20050302
  9. COUMADIN [Interacting]
     Active Substance: WARFARIN SODIUM
     Indication: ARRHYTHMIA
     Dosage: DEPENDING ON CALENDAR
     Route: 065
  10. HUMALOG [Concomitant]
     Active Substance: INSULIN LISPRO
     Indication: TYPE 2 DIABETES MELLITUS
     Dosage: AC
     Route: 065
  11. LIPITOR [Concomitant]
     Active Substance: ATORVASTATIN CALCIUM
     Indication: PRODUCT USED FOR UNKNOWN INDICATION
     Dosage: HS
     Route: 065

REACTIONS (2)
  - Drug interaction [Unknown]
  - International normalised ratio increased [Unknown]

NARRATIVE: CASE EVENT DATE: 20170302
